FAERS Safety Report 5859375-9 (Version None)
Quarter: 2008Q3

REPORT INFORMATION
  Report Type: 
  Country: None (occurrence: None)
  Receive Date: 20080827
  Receipt Date: 20080815
  Transmission Date: 20090109
  Serious: Yes (Hospitalization, Other)
  Sender: FDA-Public Use
  Company Number: US-BAYER-200813424BCC

PATIENT
  Age: 68 Year
  Sex: Male

DRUGS (12)
  1. ASPIRIN [Suspect]
     Indication: CORONARY ARTERIAL STENT INSERTION
     Dosage: TOTAL DAILY DOSE: 325 MG  UNIT DOSE: 325 MG
     Route: 048
     Dates: end: 20070228
  2. ASPIRIN [Suspect]
     Dosage: TOTAL DAILY DOSE: 81 MG  UNIT DOSE: 81 MG
     Route: 048
     Dates: start: 20080228
  3. PLAVIX [Suspect]
     Indication: CORONARY ARTERIAL STENT INSERTION
  4. SIMVASTATIN [Concomitant]
  5. LOSARTAN POTASSIUM [Concomitant]
  6. METOPROLOL TARTRATE [Concomitant]
  7. TRAVOPROST [Concomitant]
  8. LITHIUM CARBONATE [Concomitant]
  9. HALOPERIDOL [Concomitant]
  10. DOXAZOSIN MESYLATE [Concomitant]
  11. LISINOPRIL [Concomitant]
  12. VITAMINS NOS [Concomitant]

REACTIONS (7)
  - CORONARY ARTERY BYPASS [None]
  - FALL [None]
  - FEELING ABNORMAL [None]
  - HAEMORRHAGE [None]
  - ULCER HAEMORRHAGE [None]
  - UNEVALUABLE EVENT [None]
  - WHITE BLOOD CELL COUNT DECREASED [None]
